FAERS Safety Report 14564679 (Version 1)
Quarter: 2018Q1

REPORT INFORMATION
  Report Type: Report from Study
  Country: None (occurrence: BR)
  Receive Date: 20180222
  Receipt Date: 20180222
  Transmission Date: 20180509
  Serious: Yes (Death, Hospitalization, Other)
  Sender: FDA-Public Use
  Company Number: BR-ABBVIE-18K-020-2263702-00

PATIENT
  Age: 79 Year
  Sex: Female

DRUGS (1)
  1. HUMIRA [Suspect]
     Active Substance: ADALIMUMAB
     Indication: PSORIASIS
     Route: 058
     Dates: start: 20170607

REACTIONS (8)
  - Gastrointestinal carcinoma [Unknown]
  - Post procedural pneumonia [Unknown]
  - Breast cancer female [Unknown]
  - Gastric cancer [Unknown]
  - Postoperative renal failure [Unknown]
  - Death [Fatal]
  - Post procedural complication [Unknown]
  - Metastatic neoplasm [Unknown]

NARRATIVE: CASE EVENT DATE: 2018
